FAERS Safety Report 5160571-7 (Version None)
Quarter: 2006Q4

REPORT INFORMATION
  Report Type: 
  Country: None (occurrence: None)
  Receive Date: 20061121
  Receipt Date: 20061110
  Transmission Date: 20070319
  Serious: Yes (Other)
  Sender: FDA-Public Use
  Company Number: 2006140881

PATIENT
  Sex: Female

DRUGS (1)
  1. AROMASIN [Suspect]
     Indication: BREAST CANCER
     Dates: start: 20040901

REACTIONS (6)
  - BREAST CANCER RECURRENT [None]
  - CHEST PAIN [None]
  - RADIATION SKIN INJURY [None]
  - SCAB [None]
  - WEIGHT DECREASED [None]
  - WOUND SECRETION [None]
